FAERS Safety Report 5088758-2 (Version None)
Quarter: 2006Q3

REPORT INFORMATION
  Report Type: 
  Country: None (occurrence: None)
  Receive Date: 20060825
  Receipt Date: 20060818
  Transmission Date: 20061208
  Serious: Yes (Other)
  Sender: FDA-Public Use
  Company Number: RU-GLAXOSMITHKLINE-B0435631A

PATIENT
  Sex: Male

DRUGS (2)
  1. PAXIL [Suspect]
     Indication: FLUSHING
     Route: 048
     Dates: start: 20010301
  2. FLUANXOL [Concomitant]
     Indication: FLUSHING
     Dosage: .5MG PER DAY
     Route: 048
     Dates: start: 20010301

REACTIONS (7)
  - ARTHRALGIA [None]
  - EJACULATION FAILURE [None]
  - GENITAL RASH [None]
  - HYPERHIDROSIS [None]
  - PSORIASIS [None]
  - RASH [None]
  - SCLERAL HAEMORRHAGE [None]
